FAERS Safety Report 16002644 (Version 1)
Quarter: 2019Q1

REPORT INFORMATION
  Report Type: Spontaneous
  Country: US (occurrence: US)
  Receive Date: 20190225
  Receipt Date: 20190225
  Transmission Date: 20190418
  Serious: No
  Sender: FDA-Public Use
  Company Number: US-SA-2019SA046001

PATIENT
  Sex: Female
  Weight: 69.84 kg

DRUGS (11)
  1. TRAMOL [PARACETAMOL] [Concomitant]
     Dosage: 100 MG
     Route: 048
     Dates: start: 20160926
  2. SIMVASTATIN. [Concomitant]
     Active Substance: SIMVASTATIN
     Dosage: 20 MG, QD
     Route: 048
     Dates: start: 20180926
  3. HYDROCHLOROTHIAZIDE. [Concomitant]
     Active Substance: HYDROCHLOROTHIAZIDE
     Dosage: 25 MG
     Route: 048
     Dates: start: 20160926
  4. OXYBUTYNIN. [Concomitant]
     Active Substance: OXYBUTYNIN CHLORIDE
     Dosage: 5 MG, BID
     Route: 048
     Dates: start: 20180910
  5. BUSPIRONE [Concomitant]
     Active Substance: BUSPIRONE HYDROCHLORIDE
     Dosage: 10 MG
     Route: 048
     Dates: start: 20160926
  6. FABRAZYME [Suspect]
     Active Substance: AGALSIDASE BETA
     Indication: FABRY^S DISEASE
     Dosage: 70 MG EVERY 2 WEEKS
     Route: 041
     Dates: start: 20160928
  7. METAXALONE. [Concomitant]
     Active Substance: METAXALONE
     Dosage: 800 MG
     Route: 048
     Dates: start: 20160926
  8. ACETAMINOPHEN. [Concomitant]
     Active Substance: ACETAMINOPHEN
     Dosage: 100 MG
     Route: 048
     Dates: start: 20160926
  9. LOSARTIN [Concomitant]
     Active Substance: LOSARTAN
     Dosage: 25 MG
     Route: 048
     Dates: start: 20180910
  10. CYMBALTA [Concomitant]
     Active Substance: DULOXETINE HYDROCHLORIDE
     Dosage: 90 MG EVERY EVENING
     Route: 048
     Dates: start: 20160926
  11. DILTIAZEM. [Concomitant]
     Active Substance: DILTIAZEM
     Dosage: 180 MG
     Route: 048
     Dates: start: 20160926

REACTIONS (1)
  - Sinus headache [Unknown]
